FAERS Safety Report 18097931 (Version 1)
Quarter: 2020Q3

REPORT INFORMATION
  Report Type: Spontaneous
  Country: GB (occurrence: GB)
  Receive Date: 20200731
  Receipt Date: 20200731
  Transmission Date: 20201103
  Serious: Yes (Hospitalization, Other)
  Sender: FDA-Public Use
  Company Number: GB-STRIDES ARCOLAB LIMITED-2020SP008670

PATIENT
  Sex: Male

DRUGS (6)
  1. PREDNISOLONE. [Suspect]
     Active Substance: PREDNISOLONE
     Indication: RENAL TRANSPLANT
     Dosage: UNK
     Route: 065
     Dates: start: 2012, end: 201807
  2. MYCOPHENOLATE MOFETIL. [Suspect]
     Active Substance: MYCOPHENOLATE MOFETIL
     Dosage: 250 MILLIGRAM, BID
     Route: 065
     Dates: start: 201712, end: 201804
  3. MYCOPHENOLATE MOFETIL. [Suspect]
     Active Substance: MYCOPHENOLATE MOFETIL
     Indication: RENAL TRANSPLANT
     Dosage: 1000 MILLIGRAM, PER DAY.
     Route: 065
     Dates: start: 2012, end: 201712
  4. TACROLIMUS. [Suspect]
     Active Substance: TACROLIMUS
     Dosage: UNK, LOW DOSE TACROLIMUS
     Route: 065
     Dates: start: 2018
  5. TACROLIMUS. [Suspect]
     Active Substance: TACROLIMUS
     Indication: RENAL TRANSPLANT
     Dosage: UNK
     Route: 065
     Dates: start: 2012, end: 201807
  6. PREDNISOLONE. [Suspect]
     Active Substance: PREDNISOLONE
     Dosage: 20 MILLIGRAM, QD
     Route: 065
     Dates: start: 201807

REACTIONS (5)
  - Hepatitis infectious mononucleosis [Recovered/Resolved]
  - Transplant dysfunction [Recovered/Resolved]
  - Acute hepatic failure [Recovered/Resolved]
  - Transplant rejection [Recovered/Resolved]
  - Epstein-Barr viraemia [Recovered/Resolved]

NARRATIVE: CASE EVENT DATE: 201804
